FAERS Safety Report 23726775 (Version 1)
Quarter: 2024Q2

REPORT INFORMATION
  Report Type: Spontaneous
  Country: US (occurrence: US)
  Receive Date: 20240410
  Receipt Date: 20240410
  Transmission Date: 20240715
  Serious: Yes (Death, Other)
  Sender: FDA-Public Use
  Company Number: US-SUN PHARMACEUTICAL INDUSTRIES LTD-2024R1-440313

PATIENT
  Age: 64 Year
  Sex: Female

DRUGS (2)
  1. GEMCITABINE [Suspect]
     Active Substance: GEMCITABINE
     Indication: Adenocarcinoma pancreas
     Dosage: 1,000-600 MILLIGRAM/SQ. METER
     Route: 065
     Dates: start: 2023
  2. ERLOTINIB [Suspect]
     Active Substance: ERLOTINIB
     Indication: Adenocarcinoma pancreas
     Dosage: 100 MILLIGRAM, DAILY
     Route: 065
     Dates: start: 2023

REACTIONS (3)
  - Therapeutic response decreased [Unknown]
  - Pneumonitis [Recovered/Resolved]
  - Disease progression [Fatal]
